FAERS Safety Report 7660434-9 (Version None)
Quarter: 2011Q3

REPORT INFORMATION
  Report Type: 
  Country: None (occurrence: None)
  Receive Date: 20110805
  Receipt Date: 20110706
  Transmission Date: 20111222
  Serious: Yes (Hospitalization)
  Sender: FDA-Public Use
  Company Number: US-B.I. PHARMACEUTICALS,INC./RIDGEFIELD-2011-BP-17090BP

PATIENT
  Sex: Female

DRUGS (1)
  1. MIRAPEX [Suspect]
     Indication: RESTLESS LEGS SYNDROME
     Dates: start: 20010920, end: 20110531

REACTIONS (8)
  - OBSESSIVE-COMPULSIVE DISORDER [None]
  - PAIN [None]
  - HYPERPHAGIA [None]
  - EMOTIONAL DISTRESS [None]
  - DEPRESSION [None]
  - PATHOLOGICAL GAMBLING [None]
  - DERMATILLOMANIA [None]
  - COMPULSIVE SHOPPING [None]
